FAERS Safety Report 8529096 (Version 5)
Quarter: 2012Q4

REPORT INFORMATION
  Report Type: 
  Country: US (occurrence: US)
  Receive Date: 20120425
  Receipt Date: 20120921
  Transmission Date: 20130627
  Serious: Yes (Other)
  Sender: FDA-Public Use
  Company Number: US-PFIZER INC-2012098643

PATIENT
  Age: 44 Year
  Sex: Female
  Weight: 64.85 kg

DRUGS (8)
  1. EFFEXOR [Suspect]
     Indication: DEPRESSION
     Dosage: UNK
     Route: 048
  2. EFFEXOR [Suspect]
     Dosage: 225 mg, 2x/day
     Route: 048
     Dates: start: 2012, end: 20120401
  3. PRISTIQ [Suspect]
     Indication: DEPRESSION
     Dosage: 50 mg, 2x/day
     Route: 048
     Dates: start: 2012
  4. PRISTIQ [Suspect]
     Dosage: 150 mg, daily
     Route: 048
  5. EFFEXOR XR [Suspect]
     Dosage: UNK
  6. SAVELLA [Suspect]
     Indication: DEPRESSION
     Dosage: UNK
  7. INSULIN [Concomitant]
     Indication: TYPE 1 DIABETES MELLITUS
     Dosage: UNK
  8. LEVOTHYROXINE [Concomitant]
     Indication: THYROID DISORDER
     Dosage: 175 ug, daily

REACTIONS (8)
  - Drug dependence [Unknown]
  - Withdrawal syndrome [Recovered/Resolved]
  - Drug intolerance [Unknown]
  - Malaise [Recovered/Resolved]
  - Vomiting [Recovered/Resolved]
  - Nausea [Recovered/Resolved]
  - Dizziness [Recovered/Resolved]
  - Drug ineffective [Unknown]
